FAERS Safety Report 13372146 (Version 1)
Quarter: 2017Q1

REPORT INFORMATION
  Report Type: Spontaneous
  Country: US (occurrence: US)
  Receive Date: 20170324
  Receipt Date: 20170324
  Transmission Date: 20170429
  Serious: Yes (Other)
  Sender: FDA-Public Use
  Company Number: None

PATIENT
  Age: 70 Year
  Sex: Female
  Weight: 81 kg

DRUGS (2)
  1. RECLAST [Suspect]
     Active Substance: ZOLEDRONIC ACID
     Indication: OSTEOPOROSIS
     Dates: start: 20170306, end: 20170306
  2. ARIMIDEX [Concomitant]
     Active Substance: ANASTROZOLE

REACTIONS (3)
  - Ageusia [None]
  - Nasopharyngitis [None]
  - Influenza like illness [None]

NARRATIVE: CASE EVENT DATE: 20170306
